FAERS Safety Report 18881868 (Version 1)
Quarter: 2021Q1

REPORT INFORMATION
  Report Type: Other
  Country: ZA (occurrence: ZA)
  Receive Date: 20210212
  Receipt Date: 20210212
  Transmission Date: 20210420
  Serious: Yes (Other)
  Sender: FDA-Public Use
  Company Number: ZA-ROCHE-2767183

PATIENT
  Sex: Male

DRUGS (2)
  1. LUCENTIS [Suspect]
     Active Substance: RANIBIZUMAB
     Indication: AGE-RELATED MACULAR DEGENERATION
     Dosage: 0.05 ML, UNK
     Route: 065
     Dates: start: 2016
  2. LUCENTIS [Suspect]
     Active Substance: RANIBIZUMAB
     Indication: MACULAR DEGENERATION
     Dosage: 0.5 MG, QMO
     Route: 047
     Dates: start: 20161016

REACTIONS (4)
  - Subretinal fluid [Unknown]
  - Visual acuity reduced [Unknown]
  - Haemorrhage [Unknown]
  - Retinal oedema [Unknown]

NARRATIVE: CASE EVENT DATE: 20210126
